FAERS Safety Report 5816623-9 (Version None)
Quarter: 2008Q3

REPORT INFORMATION
  Report Type: 
  Country: None (occurrence: None)
  Receive Date: 20080721
  Receipt Date: 20080709
  Transmission Date: 20090109
  Serious: Yes (Disabling)
  Sender: FDA-Public Use
  Company Number: DE-PFIZER INC-2008055537

PATIENT
  Sex: Male

DRUGS (4)
  1. CABASERIL [Suspect]
     Indication: PARKINSON'S DISEASE
     Dosage: DAILY DOSE:6MG
     Route: 048
  2. XALATAN [Concomitant]
  3. ALL OTHER THERAPEUTIC PRODUCTS [Concomitant]
  4. MACROGOL [Concomitant]

REACTIONS (3)
  - PENILE PAIN [None]
  - PRIAPISM [None]
  - SPONTANEOUS PENILE ERECTION [None]
